FAERS Safety Report 6006293-1 (Version None)
Quarter: 2008Q4

REPORT INFORMATION
  Report Type: 
  Country: None (occurrence: None)
  Receive Date: 20081215
  Receipt Date: 20081203
  Transmission Date: 20090506
  Serious: Yes (Hospitalization, Other)
  Sender: FDA-Public Use
  Company Number: 2008AP003323

PATIENT
  Age: 44 Year
  Sex: Female

DRUGS (13)
  1. CITALOPRAM HYDROBROMIDE [Suspect]
     Dosage: 20 MG; QD
  2. METHYLENE BLUE (METHYLTHIONIUM CHLORIDE) [Suspect]
  3. ACETYLSALICYLIC ACID (ACETYSALICYLIC ACID) [Concomitant]
  4. SIMVASTATIN [Concomitant]
  5. ATENOLOL [Concomitant]
  6. ISOSORBIDE MONONITRATE [Concomitant]
  7. BENDROFLUMETHIAZIDE (BENDROFLUMETHIAZIDE) [Concomitant]
  8. FELODIPINE [Concomitant]
  9. PROPOFOL [Concomitant]
  10. REMIFENTANIL (REMIFENTANIL) [Concomitant]
  11. ROCURONIUM BROMIDE [Concomitant]
  12. DEXAMETHASONE TAB [Concomitant]
  13. MORPHINE [Concomitant]

REACTIONS (12)
  - AGITATION [None]
  - BLOOD PHOSPHORUS INCREASED [None]
  - DRUG INTERACTION [None]
  - GLASGOW COMA SCALE ABNORMAL [None]
  - INFLAMMATION [None]
  - MYDRIASIS [None]
  - MYOCLONUS [None]
  - OXYGEN SATURATION DECREASED [None]
  - PUPILLARY REFLEX IMPAIRED [None]
  - SEROTONIN SYNDROME [None]
  - SPEECH DISORDER [None]
  - STARING [None]
